FAERS Safety Report 6282212-8 (Version None)
Quarter: 2009Q3

REPORT INFORMATION
  Report Type: 
  Country: None (occurrence: None)
  Receive Date: 20090721
  Receipt Date: 20090721
  Transmission Date: 20100115
  Serious: Yes (Hospitalization)
  Sender: FDA-Public Use
  Company Number: None

PATIENT
  Sex: Male
  Weight: 77.6 kg

DRUGS (2)
  1. CARBOPLATIN [Suspect]
     Dosage: 900 MG
  2. TAXOL [Suspect]
     Dosage: 400 MG

REACTIONS (1)
  - HAEMOGLOBIN DECREASED [None]
